FAERS Safety Report 25498713 (Version 1)
Quarter: 2025Q3

REPORT INFORMATION
  Report Type: Spontaneous
  Country: US (occurrence: US)
  Receive Date: 20250701
  Receipt Date: 20250701
  Transmission Date: 20251021
  Serious: Yes (Hospitalization)
  Sender: MYLAN
  Company Number: US-HOSPIRA-1536601

PATIENT
  Age: 57 Year
  Sex: Female

DRUGS (16)
  1. PHENYTOIN [Suspect]
     Active Substance: PHENYTOIN
     Indication: Prophylaxis
  2. PHENYTOIN [Suspect]
     Active Substance: PHENYTOIN
     Indication: Seizure
  3. PHENYTOIN [Suspect]
     Active Substance: PHENYTOIN
     Route: 065
  4. PHENYTOIN [Suspect]
     Active Substance: PHENYTOIN
     Route: 065
  5. PHENYTOIN [Suspect]
     Active Substance: PHENYTOIN
  6. PHENYTOIN [Suspect]
     Active Substance: PHENYTOIN
  7. PHENYTOIN [Suspect]
     Active Substance: PHENYTOIN
     Route: 065
  8. PHENYTOIN [Suspect]
     Active Substance: PHENYTOIN
     Route: 065
  9. DEXAMETHASONE [Suspect]
     Active Substance: DEXAMETHASONE
     Indication: Prophylaxis
  10. DEXAMETHASONE [Suspect]
     Active Substance: DEXAMETHASONE
     Indication: Seizure
  11. DEXAMETHASONE [Suspect]
     Active Substance: DEXAMETHASONE
     Route: 065
  12. DEXAMETHASONE [Suspect]
     Active Substance: DEXAMETHASONE
     Route: 065
  13. DEXAMETHASONE [Suspect]
     Active Substance: DEXAMETHASONE
  14. DEXAMETHASONE [Suspect]
     Active Substance: DEXAMETHASONE
  15. DEXAMETHASONE [Suspect]
     Active Substance: DEXAMETHASONE
     Route: 065
  16. DEXAMETHASONE [Suspect]
     Active Substance: DEXAMETHASONE
     Route: 065

REACTIONS (2)
  - Drug interaction [Recovered/Resolved]
  - Thrombocytopenia [Recovered/Resolved]
